FAERS Safety Report 5717597-1 (Version None)
Quarter: 2008Q2

REPORT INFORMATION
  Report Type: 
  Country: None (occurrence: None)
  Receive Date: 20080425
  Receipt Date: 20070801
  Transmission Date: 20081010
  Serious: No
  Sender: FDA-Public Use
  Company Number: US-ABBOTT-07P-163-0378834-00

PATIENT
  Sex: Female
  Weight: 88.53 kg

DRUGS (1)
  1. E.E.S. 400 FILMTAB [Suspect]
     Indication: DRUG USE FOR UNKNOWN INDICATION

REACTIONS (2)
  - RASH [None]
  - RESPIRATORY DISTRESS [None]
